FAERS Safety Report 10146044 (Version 1)
Quarter: 2014Q2

REPORT INFORMATION
  Report Type: Spontaneous
  Country: US (occurrence: None)
  Receive Date: 20140430
  Receipt Date: 20140430
  Transmission Date: 20141212
  Serious: Yes (Death, Life-Threatening)
  Sender: FDA-Public Use
  Company Number: None

PATIENT
  Age: 42 Year
  Sex: Male

DRUGS (1)
  1. ASENAPINE [Suspect]
     Indication: BIPOLAR DISORDER

REACTIONS (6)
  - Sedation [None]
  - Dyspnoea [None]
  - Snoring [None]
  - Somnolence [None]
  - Overdose [None]
  - Completed suicide [None]
